FAERS Safety Report 9143722 (Version 1)
Quarter: 2013Q1

REPORT INFORMATION
  Report Type: Spontaneous
  Country: GB (occurrence: GB)
  Receive Date: 20130306
  Receipt Date: 20130306
  Transmission Date: 20140127
  Serious: Yes (Hospitalization)
  Sender: FDA-Public Use
  Company Number: GB-TEVA-388360ISR

PATIENT
  Age: 71 Year
  Sex: Female
  Weight: 77.56 kg

DRUGS (1)
  1. TRIMETHOPRIM [Suspect]
     Indication: URINARY TRACT INFECTION
     Route: 048
     Dates: start: 20110809, end: 20110816

REACTIONS (3)
  - Optic neuritis [Recovered/Resolved]
  - Eye pain [Recovered/Resolved]
  - Visual acuity reduced [Recovered/Resolved]
